FAERS Safety Report 9393459 (Version 2)
Quarter: 2013Q3

REPORT INFORMATION
  Report Type: Spontaneous
  Country: US (occurrence: US)
  Receive Date: 20130710
  Receipt Date: 20130916
  Transmission Date: 20140515
  Serious: No
  Sender: FDA-Public Use
  Company Number: US-TEVA-415071USA

PATIENT
  Age: 18 Year
  Sex: Female
  Weight: 75.36 kg

DRUGS (1)
  1. PARAGARD 380A [Suspect]
     Indication: CONTRACEPTION
     Route: 015
     Dates: start: 20130419, end: 20130510

REACTIONS (4)
  - Pelvic pain [Recovered/Resolved]
  - Uterine spasm [Recovered/Resolved]
  - Metrorrhagia [Recovered/Resolved]
  - Device expulsion [Recovered/Resolved]
